FAERS Safety Report 16971209 (Version 4)
Quarter: 2020Q1

REPORT INFORMATION
  Report Type: Spontaneous
  Country: US (occurrence: US)
  Receive Date: 20191029
  Receipt Date: 20200330
  Transmission Date: 20200409
  Serious: No
  Sender: FDA-Public Use
  Company Number: US-DSJP-DSU-2019-137838

PATIENT

DRUGS (5)
  1. TURALIO [Suspect]
     Active Substance: PEXIDARTINIB HYDROCHLORIDE
     Dosage: 1 CAPSULE IN THE MORNING AND 2 CAPSULES AT NIGHT
     Route: 048
     Dates: start: 20190911
  2. TURALIO [Suspect]
     Active Substance: PEXIDARTINIB HYDROCHLORIDE
     Dosage: 400MG, 1 CAP. IN THE EVENING
     Route: 048
     Dates: start: 20190913
  3. SYNTHROID [Concomitant]
     Active Substance: LEVOTHYROXINE SODIUM
     Indication: HYPOTHYROIDISM
     Dosage: 88 UG, QD
     Route: 048
  4. TURALIO [Suspect]
     Active Substance: PEXIDARTINIB HYDROCHLORIDE
     Indication: SYNOVITIS
     Dosage: 200MG, 1 CAP. PO QAM, 2CAPS.PO QPM
     Route: 048
     Dates: end: 20191027
  5. TURALIO [Suspect]
     Active Substance: PEXIDARTINIB HYDROCHLORIDE
     Dosage: 200MG, 1 CAP. MORNING
     Route: 048
     Dates: start: 20190913

REACTIONS (3)
  - Off label use [Recovered/Resolved]
  - Thyroxine increased [Not Recovered/Not Resolved]
  - Product dose omission [Unknown]

NARRATIVE: CASE EVENT DATE: 2019
